FAERS Safety Report 11790258 (Version 2)
Quarter: 2015Q4

REPORT INFORMATION
  Report Type: Report from Study
  Country: BR (occurrence: BR)
  Receive Date: 20151201
  Receipt Date: 20151204
  Transmission Date: 20160305
  Serious: Yes (Hospitalization)
  Sender: FDA-Public Use
  Company Number: BR-BIOGENIDEC-2015BI157650

PATIENT
  Age: 42 Year
  Sex: Female

DRUGS (12)
  1. ATHENOLOL [Concomitant]
     Indication: BLOOD PRESSURE MEASUREMENT
     Dates: start: 2012
  2. VITAMIN D [Concomitant]
     Active Substance: CHOLECALCIFEROL
     Dates: start: 2014
  3. VITAMIN E [Concomitant]
     Active Substance: .ALPHA.-TOCOPHEROL
     Dates: start: 2014
  4. OMEGA 3 [Concomitant]
     Active Substance: OMEGA-3 FATTY ACIDS
     Dates: start: 2014
  5. AVONEX [Suspect]
     Active Substance: INTERFERON BETA-1A
     Indication: MULTIPLE SCLEROSIS
     Route: 030
     Dates: start: 20131101
  6. COMPLEX B VITAMINS [Concomitant]
     Dates: start: 2014
  7. AVONEX [Suspect]
     Active Substance: INTERFERON BETA-1A
     Indication: MULTIPLE SCLEROSIS
     Route: 030
     Dates: start: 20080320, end: 20131024
  8. BACLOFEN. [Concomitant]
     Active Substance: BACLOFEN
     Indication: PAIN IN EXTREMITY
     Dates: start: 201405
  9. NAPROXEN SODIUM. [Concomitant]
     Active Substance: NAPROXEN SODIUM
     Indication: PREMEDICATION
  10. AMITRIL [Concomitant]
     Active Substance: AMITRIPTYLINE HYDROCHLORIDE
     Indication: MUSCLE SPASMS
     Dates: start: 2004
  11. LOSARTAN. [Concomitant]
     Active Substance: LOSARTAN
     Indication: BLOOD PRESSURE MEASUREMENT
     Dates: start: 2012
  12. HYDROCHLOROTHYAZIDE [Concomitant]
     Active Substance: HYDROCHLOROTHIAZIDE
     Indication: BLOOD PRESSURE MEASUREMENT
     Dates: start: 2012

REACTIONS (3)
  - Sensory loss [Recovered/Resolved]
  - Pain of skin [Recovered/Resolved]
  - Hyperaesthesia [Recovered/Resolved]

NARRATIVE: CASE EVENT DATE: 201108
